FAERS Safety Report 19776845 (Version 1)
Quarter: 2021Q3

REPORT INFORMATION
  Report Type: Report from Study
  Country: AR (occurrence: AR)
  Receive Date: 20210902
  Receipt Date: 20210902
  Transmission Date: 20211014
  Serious: Yes (Death, Hospitalization, Other)
  Sender: FDA-Public Use
  Company Number: NVSC2020AR078834

PATIENT
  Age: 83 Year
  Sex: Male

DRUGS (3)
  1. ENTRESTO [Suspect]
     Active Substance: SACUBITRIL\VALSARTAN
     Indication: CARDIAC FAILURE
     Dosage: 300 MG (START DATE 60 DAYS AGO)
     Route: 065
  2. ENTRESTO [Suspect]
     Active Substance: SACUBITRIL\VALSARTAN
     Indication: ARTERIOSCLEROSIS
     Dosage: 2 DF, QD (STARTED 4 YEARS AGO AND STOP DATE IS 60 DAYS AGO)
     Route: 065
  3. ENTRESTO [Suspect]
     Active Substance: SACUBITRIL\VALSARTAN
     Dosage: 2 DF
     Route: 065

REACTIONS (7)
  - Multiple organ dysfunction syndrome [Fatal]
  - Arrhythmia [Fatal]
  - Malaise [Unknown]
  - Renal failure [Unknown]
  - Dyspnoea [Unknown]
  - Wrong technique in product usage process [Not Recovered/Not Resolved]
  - Vein collapse [Unknown]

NARRATIVE: CASE EVENT DATE: 20210705
